FAERS Safety Report 7238197-0 (Version None)
Quarter: 2011Q1

REPORT INFORMATION
  Report Type: 
  Country: None (occurrence: None)
  Receive Date: 20110121
  Receipt Date: 20110119
  Transmission Date: 20110831
  Serious: No
  Sender: FDA-Public Use
  Company Number: US-PFIZER INC-2011013672

PATIENT
  Sex: Female
  Weight: 53.1 kg

DRUGS (3)
  1. METOPROLOL [Concomitant]
     Indication: HYPERTENSION
     Dosage: 100 MG, 2X/DAY
  2. TIKOSYN [Suspect]
     Dosage: 125 UG, 2X/DAY
     Dates: start: 20110112
  3. TIKOSYN [Suspect]
     Indication: ATRIAL FIBRILLATION
     Dosage: 0.25 UG, 2X/DAY
     Route: 048
     Dates: start: 20070101

REACTIONS (2)
  - MEDICAL DEVICE COMPLICATION [None]
  - INFECTION [None]
